FAERS Safety Report 23910389 (Version 3)
Quarter: 2024Q4

REPORT INFORMATION
  Report Type: Spontaneous
  Country: US (occurrence: US)
  Receive Date: 20240528
  Receipt Date: 20241125
  Transmission Date: 20250114
  Serious: No
  Sender: AVADEL CNS PHARMACEUTICALS, LLC
  Company Number: US-AVADEL CNS PHARMACEUTICALS, LLC-2024AVA00568

PATIENT
  Sex: Male

DRUGS (30)
  1. LUMRYZ [Suspect]
     Active Substance: SODIUM OXYBATE
     Indication: Narcolepsy
     Dosage: 4.5 G
     Dates: start: 202404, end: 202404
  2. LUMRYZ [Suspect]
     Active Substance: SODIUM OXYBATE
     Indication: Cataplexy
  3. LUMRYZ [Suspect]
     Active Substance: SODIUM OXYBATE
     Indication: Sleep apnoea syndrome
  4. LUMRYZ [Suspect]
     Active Substance: SODIUM OXYBATE
     Indication: Somnolence
  5. LUMRYZ [Suspect]
     Active Substance: SODIUM OXYBATE
     Indication: Narcolepsy
     Dosage: 6 G
     Dates: start: 202404, end: 20240425
  6. LUMRYZ [Suspect]
     Active Substance: SODIUM OXYBATE
     Indication: Cataplexy
  7. LUMRYZ [Suspect]
     Active Substance: SODIUM OXYBATE
     Indication: Sleep apnoea syndrome
  8. LUMRYZ [Suspect]
     Active Substance: SODIUM OXYBATE
     Indication: Somnolence
  9. LUMRYZ [Suspect]
     Active Substance: SODIUM OXYBATE
     Indication: Narcolepsy
     Dosage: 7.5 G, ONCE NIGHTLY
     Dates: start: 20240426, end: 2024
  10. LUMRYZ [Suspect]
     Active Substance: SODIUM OXYBATE
     Indication: Cataplexy
  11. LUMRYZ [Suspect]
     Active Substance: SODIUM OXYBATE
     Indication: Sleep apnoea syndrome
  12. LUMRYZ [Suspect]
     Active Substance: SODIUM OXYBATE
     Indication: Somnolence
  13. LUMRYZ [Suspect]
     Active Substance: SODIUM OXYBATE
     Indication: Narcolepsy
     Dosage: 9 G, ONCE NIGHTLY
     Dates: start: 2024
  14. LUMRYZ [Suspect]
     Active Substance: SODIUM OXYBATE
     Indication: Cataplexy
  15. LUMRYZ [Suspect]
     Active Substance: SODIUM OXYBATE
     Indication: Sleep apnoea syndrome
  16. LUMRYZ [Suspect]
     Active Substance: SODIUM OXYBATE
     Indication: Somnolence
  17. TRICOR [Suspect]
     Active Substance: FENOFIBRATE
     Indication: Blood triglycerides increased
     Dosage: UNK
     Dates: start: 2024, end: 20240529
  18. ATORVASTATIN [Concomitant]
     Active Substance: ATORVASTATIN
  19. SUNOSI [Concomitant]
     Active Substance: SOLRIAMFETOL
     Dosage: UNK, DURING THE DAY
  20. VITAMIN B COMPLEX [Concomitant]
     Active Substance: CYANOCOBALAMIN\DEXPANTHENOL\NIACINAMIDE\PYRIDOXINE HYDROCHLORIDE\RIBOFLAVIN 5^-PHOSPHATE SODIUM\THIA
  21. VITAMIN C [Concomitant]
     Active Substance: ASCORBIC ACID
  22. VITAMIN D NOS [Concomitant]
     Active Substance: CHOLECALCIFEROL\ERGOCALCIFEROL
  23. XYZAL [Concomitant]
     Active Substance: LEVOCETIRIZINE DIHYDROCHLORIDE
  24. CARVEDILOL [Concomitant]
     Active Substance: CARVEDILOL
  25. FAMOTIDINE [Concomitant]
     Active Substance: FAMOTIDINE
  26. METFORMIN [Concomitant]
     Active Substance: METFORMIN HYDROCHLORIDE
  27. JANUVIA [Concomitant]
     Active Substance: SITAGLIPTIN PHOSPHATE
  28. BYDUREON BCISE [Concomitant]
     Active Substance: EXENATIDE
     Dosage: UNK, 1X/WEEK
  29. COLESEVELAM [Concomitant]
     Active Substance: COLESEVELAM
  30. MAGNESIUM [Concomitant]
     Active Substance: MAGNESIUM

REACTIONS (10)
  - Poor quality sleep [Not Recovered/Not Resolved]
  - Initial insomnia [Not Recovered/Not Resolved]
  - Middle insomnia [Recovering/Resolving]
  - Glomerular filtration rate decreased [Not Recovered/Not Resolved]
  - Blood glucose increased [Not Recovered/Not Resolved]
  - Dysgeusia [Not Recovered/Not Resolved]
  - Blood triglycerides increased [Unknown]
  - Intentional dose omission [Recovered/Resolved]
  - Insomnia [Not Recovered/Not Resolved]
  - Drug ineffective [Not Recovered/Not Resolved]

NARRATIVE: CASE EVENT DATE: 20240101
